FAERS Safety Report 7420600-4 (Version None)
Quarter: 2011Q2

REPORT INFORMATION
  Report Type: 
  Country: None (occurrence: None)
  Receive Date: 20110418
  Receipt Date: 20110413
  Transmission Date: 20111010
  Serious: Yes (Life-Threatening, Other)
  Sender: FDA-Public Use
  Company Number: JP-BRACCO-004596

PATIENT
  Sex: Male
  Weight: 70 kg

DRUGS (9)
  1. IOPAMIDOL [Concomitant]
     Dates: start: 20090914, end: 20090914
  2. IOPAMIDOL [Suspect]
     Indication: MEDIASTINITIS
     Dosage: ADMINISTERED AT 3 ML/SEC
     Route: 042
     Dates: start: 20110302, end: 20110302
  3. IOPAMIDOL [Suspect]
     Indication: DEVICE RELATED INFECTION
     Dosage: ADMINISTERED AT 3 ML/SEC
     Route: 042
     Dates: start: 20110302, end: 20110302
  4. SEROQUEL [Concomitant]
     Dates: start: 20110226, end: 20110310
  5. MEROPENEM [Concomitant]
     Dates: start: 20110216, end: 20110307
  6. IOPAMIDOL [Concomitant]
     Dates: start: 20100823, end: 20100823
  7. IOPAMIDOL [Suspect]
     Indication: COMPUTERISED TOMOGRAM
     Dosage: ADMINISTERED AT 3 ML/SEC
     Route: 042
     Dates: start: 20110302, end: 20110302
  8. THEO-DUR [Concomitant]
     Dates: start: 20110228
  9. DEPAS [Concomitant]

REACTIONS (4)
  - UNEVALUABLE EVENT [None]
  - DYSPNOEA [None]
  - ALTERED STATE OF CONSCIOUSNESS [None]
  - RESTLESSNESS [None]
